FAERS Safety Report 5923520-7 (Version None)
Quarter: 2008Q4

REPORT INFORMATION
  Report Type: 
  Country: None (occurrence: None)
  Receive Date: 20081020
  Receipt Date: 20081008
  Transmission Date: 20090506
  Serious: Yes (Hospitalization, Other)
  Sender: FDA-Public Use
  Company Number: US-AMGEN-QUU307764

PATIENT
  Sex: Female

DRUGS (8)
  1. ENBREL [Suspect]
     Indication: PSORIATIC ARTHROPATHY
     Route: 058
     Dates: start: 20030301
  2. VITAMIN TAB [Concomitant]
  3. ASPIRIN [Concomitant]
  4. FOLIC ACID [Concomitant]
  5. PREDNISONE TAB [Concomitant]
  6. LOVENOX [Concomitant]
  7. CALCIUM CARBONATE [Concomitant]
  8. RHOGAM [Concomitant]

REACTIONS (15)
  - CONSTIPATION [None]
  - DIARRHOEA [None]
  - DYSPEPSIA [None]
  - FAILED INDUCTION OF LABOUR [None]
  - FOETAL GROWTH RETARDATION [None]
  - HAEMORRHOIDS [None]
  - HEADACHE [None]
  - JOINT EFFUSION [None]
  - MUSCLE SPASMS [None]
  - NAUSEA [None]
  - PAIN [None]
  - PELVIC PAIN [None]
  - PREMATURE LABOUR [None]
  - SCIATICA [None]
  - VOMITING IN PREGNANCY [None]
